FAERS Safety Report 8991189 (Version 1)
Quarter: 2012Q4

REPORT INFORMATION
  Report Type: 
  Country: US (occurrence: US)
  Receive Date: 20121231
  Receipt Date: 20121231
  Transmission Date: 20130627
  Serious: Yes (Other)
  Sender: FDA-Public Use
  Company Number: US-PAR PHARMACEUTICAL, INC-2011MA002170

PATIENT
  Sex: Male
  Weight: 126.98 kg

DRUGS (1)
  1. METOCLOPRAMIDE [Suspect]
     Indication: IRRITABLE BOWEL SYNDROME
     Dosage: 10 mg, tid
     Route: 048
     Dates: start: 20090527, end: 20090827

REACTIONS (8)
  - Muscle twitching [Unknown]
  - Gait disturbance [Unknown]
  - Loss of proprioception [Unknown]
  - Emotional distress [Unknown]
  - Injury [Unknown]
  - Clumsiness [Unknown]
  - Walking aid user [Unknown]
  - Dyskinesia [Unknown]
